FAERS Safety Report 10678571 (Version 1)
Quarter: 2014Q4

REPORT INFORMATION
  Report Type: Spontaneous
  Country: JP (occurrence: None)
  Receive Date: 20141223
  Receipt Date: 20141223
  Transmission Date: 20150529
  Serious: Yes (Hospitalization, Other)
  Sender: FDA-Public Use
  Company Number: AXC-2014-000769

PATIENT
  Age: 63 Year
  Sex: Female
  Weight: 47 kg

DRUGS (9)
  1. URSODEOXYCHOLIC ACID [Suspect]
     Active Substance: URSODIOL
     Indication: CHRONIC HEPATITIS C
     Route: 048
  2. MYCOPENOLATE MOFETIL [Suspect]
     Active Substance: MYCOPHENOLATE MOFETIL
     Indication: IMMUNOSUPPRESSANT DRUG THERAPY
     Dosage: UNK, UNKNOWN
     Dates: start: 2007
  3. ASPIRIN. [Suspect]
     Active Substance: ASPIRIN
     Indication: PRODUCT USED FOR UNKNOWN INDICATION
     Route: 048
  4. ENTECAVIR. [Suspect]
     Active Substance: ENTECAVIR
     Indication: HEPATITIS B
     Dosage: RT UNKNOWN
     Dates: start: 20111012
  5. METHYLPREDNISOLONE (METHYLPREDNISOLONE) UNKNOWN [Suspect]
     Active Substance: METHYLPREDNISOLONE
     Indication: IMMUNOSUPPRESSANT DRUG THERAPY
     Dosage: UNK; TAPERED TO 0 AT ONE MONTH AFTER SURGERY, UNKNOWN?
     Dates: start: 2007, end: 2007
  6. MONAMMONIUM GLYCYRRHIZINATE [Concomitant]
  7. PEGYLATED INTERFERON NOS [Suspect]
     Active Substance: PEGINTERFERON ALFA-2A OR PEGINTERFERON ALFA-2B OR PEGINTERFERON BETA-1A OR PEGINTERFERON LAMBDA-1A
     Indication: IMMUNOSUPPRESSANT DRUG THERAPY
     Dosage: UNK, UNKNOWN
     Dates: start: 20070509
  8. TACROLIMUS (TACROLIMUS) UNKNOWN, UNKUNK [Suspect]
     Active Substance: TACROLIMUS
     Indication: IMMUNOSUPPRESSANT DRUG THERAPY
     Route: 048
     Dates: start: 2007
  9. RIBAVIRIN (RIBAVIRIN) UNKNOWN, UNKNOWN [Suspect]
     Active Substance: RIBAVIRIN
     Indication: HEPATITIS C
     Dates: start: 20070509

REACTIONS (8)
  - Drug ineffective for unapproved indication [None]
  - Off label use [None]
  - Hepatitis B [None]
  - Pneumonia [None]
  - Liver transplant [None]
  - Autoimmune hepatitis [None]
  - Hepatitis C [None]
  - Platelet count decreased [None]

NARRATIVE: CASE EVENT DATE: 200612
